FAERS Safety Report 19210852 (Version 1)
Quarter: 2021Q2

REPORT INFORMATION
  Report Type: Spontaneous
  Country: US (occurrence: US)
  Receive Date: 20210504
  Receipt Date: 20210504
  Transmission Date: 20210717
  Serious: No
  Sender: FDA-Public Use
  Company Number: US-DRREDDYS-USA/USA/21/0135055

PATIENT
  Age: 69 Year
  Sex: Female

DRUGS (1)
  1. ZENATANE [Suspect]
     Active Substance: ISOTRETINOIN
     Indication: PRODUCT USED FOR UNKNOWN INDICATION
     Dosage: RMA ISSUE DATE:9/24/2020 3:06:30 PM,10/29/2020 3:27:20 PM ,4/5/2021 9:35:12 AM
     Route: 048

REACTIONS (1)
  - Product administration interrupted [Unknown]
